FAERS Safety Report 5940573-0 (Version None)
Quarter: 2008Q4

REPORT INFORMATION
  Report Type: 
  Country: None (occurrence: None)
  Receive Date: 20081104
  Receipt Date: 20081023
  Transmission Date: 20090506
  Serious: Yes (Death)
  Sender: FDA-Public Use
  Company Number: SE-ROCHE-593385

PATIENT
  Age: 37 Year
  Sex: Male

DRUGS (6)
  1. IKTORIVIL [Suspect]
     Indication: DRUG USE FOR UNKNOWN INDICATION
     Route: 065
  2. METADON [Suspect]
     Indication: DRUG USE FOR UNKNOWN INDICATION
     Route: 065
  3. NEXIUM [Concomitant]
  4. CYMBALTA [Concomitant]
  5. CREON [Concomitant]
  6. SPASMOFEN [Concomitant]

REACTIONS (2)
  - ALCOHOL USE [None]
  - SUDDEN DEATH [None]
